FAERS Safety Report 5292283-3 (Version None)
Quarter: 2007Q2

REPORT INFORMATION
  Report Type: 
  Country: None (occurrence: None)
  Receive Date: 20070403
  Receipt Date: 20070323
  Transmission Date: 20071010
  Serious: Yes (Hospitalization)
  Sender: FDA-Public Use
  Company Number: 154382ISR

PATIENT
  Sex: Female

DRUGS (2)
  1. AMITRIPTYLINE HCL [Suspect]
  2. LINEZOLID [Suspect]

REACTIONS (2)
  - DRUG INTERACTION [None]
  - NERVOUS SYSTEM DISORDER [None]
